FAERS Safety Report 8792531 (Version 2)
Quarter: 2012Q4

REPORT INFORMATION
  Report Type: 
  Country: JP (occurrence: JP)
  Receive Date: 20120918
  Receipt Date: 20121218
  Transmission Date: 20130627
  Serious: Yes (Hospitalization, Disabling)
  Sender: FDA-Public Use
  Company Number: JP-009507513-2012SP033057

PATIENT
  Age: 64 Year
  Sex: Female
  Weight: 58 kg

DRUGS (19)
  1. TEMODAL [Suspect]
     Indication: GLIOBLASTOMA MULTIFORME
     Dosage: 120 mg, qd
     Route: 048
     Dates: start: 20100602, end: 20100713
  2. TEMODAL [Suspect]
     Dosage: 160 mg, qd
     Route: 048
     Dates: start: 20101217, end: 20101221
  3. TEMODAL [Suspect]
     Dosage: 200 mg, qd
     Route: 048
     Dates: start: 20110114, end: 20110118
  4. TEMODAL [Suspect]
     Dosage: 240 mg, qd
     Route: 048
     Dates: start: 20110211, end: 20110215
  5. TEMODAL [Suspect]
     Dosage: 240 mg, qd
     Route: 048
     Dates: start: 20110405, end: 20110409
  6. TEMODAL [Suspect]
     Dosage: 240 mg, qd
     Route: 048
     Dates: start: 20110525, end: 20110529
  7. TEMODAL [Suspect]
     Dosage: 240 mg, qd
     Route: 048
     Dates: start: 20110706, end: 20110710
  8. TEMODAL [Suspect]
     Dosage: 240 mg, qd
     Route: 048
     Dates: start: 20110811, end: 20110815
  9. TEMODAL [Suspect]
     Dosage: 240 mg, qd
     Route: 048
     Dates: start: 20110913, end: 20110917
  10. TEMODAL [Suspect]
     Dosage: 240 mg, qd
     Route: 048
     Dates: start: 20111019, end: 20111023
  11. TEMODAL [Suspect]
     Dosage: 240 mg, qd
     Route: 048
     Dates: start: 201110, end: 20111031
  12. PREDNISOLONE [Suspect]
     Indication: CEREBRAL OEDEMA MANAGEMENT
     Dosage: total daily dose 20 mg, Divided dose frequency unknown
     Route: 048
     Dates: start: 20110830, end: 20111031
  13. TEGRETOL [Concomitant]
     Indication: CONVULSION
     Dosage: Total daily dose 200 mg
     Route: 048
     Dates: start: 20100314, end: 20111031
  14. ADALAT CR [Concomitant]
     Indication: HYPERTENSION
     Dosage: total daily dose 4 mg, Divided dose frequency unknown
     Route: 048
     Dates: start: 20100307, end: 20111031
  15. OLMETEC [Concomitant]
     Indication: HYPERTENSION
     Dosage: total daily dose 23 mg, Divided dose frequency unknown
     Route: 048
     Dates: start: 20100523, end: 20111031
  16. MAGLAX (MAGNESIUM OXIDE) [Concomitant]
     Indication: CONSTIPATION
     Dosage: total daily dose 750 mg, Divided dose frequency unknown
     Route: 048
     Dates: start: 20100617, end: 20111031
  17. URSO [Concomitant]
     Indication: HEPATIC FUNCTION ABNORMAL
     Dosage: total daily dose 300 mg, Divided dose frequency unknown
     Route: 048
     Dates: start: 20110209, end: 20111031
  18. JUVELA N [Concomitant]
     Indication: CEREBRAL OEDEMA MANAGEMENT
     Dosage: total daily dose 300 mg, Divided dose frequency unknown
     Route: 048
     Dates: start: 20110820, end: 20111031
  19. GASTER [Concomitant]
     Indication: PROPHYLAXIS AGAINST GASTROINTESTINAL ULCER
     Dosage: total daily dose 20 mg, Divided dose frequency unknown
     Route: 048
     Dates: start: 20110803, end: 20111031

REACTIONS (1)
  - Cerebral infarction [Recovered/Resolved with Sequelae]
